FAERS Safety Report 7551607-4 (Version None)
Quarter: 2011Q2

REPORT INFORMATION
  Report Type: 
  Country: None (occurrence: None)
  Receive Date: 20110609
  Receipt Date: 20110524
  Transmission Date: 20111010
  Serious: Yes (Death, Other)
  Sender: FDA-Public Use
  Company Number: 2011MA006392

PATIENT
  Age: 43 Year
  Sex: Male

DRUGS (4)
  1. PYRAZINAMIDE [Concomitant]
  2. ISONIAZID [Concomitant]
  3. ETHAMBUTOL [Concomitant]
  4. RIFAMPIN [Suspect]
     Indication: TUBERCULOSIS

REACTIONS (3)
  - THROMBOCYTOPENIA [None]
  - DRUG SPECIFIC ANTIBODY PRESENT [None]
  - BLOOD IMMUNOGLOBULIN E INCREASED [None]
